FAERS Safety Report 5398859-7 (Version None)
Quarter: 2007Q3

REPORT INFORMATION
  Report Type: 
  Country: None (occurrence: None)
  Receive Date: 20070727
  Receipt Date: 20070726
  Transmission Date: 20080115
  Serious: Yes (Death, Other)
  Sender: FDA-Public Use
  Company Number: PHNU2007DE02656

PATIENT
  Sex: Male

DRUGS (8)
  1. ZOMETA [Suspect]
     Indication: METASTASES TO BONE
     Dosage: 4 MG, UNK
     Route: 042
     Dates: start: 20031201
  2. CAPTOPRIL [Concomitant]
     Dosage: 50 MG, UNK
     Route: 065
  3. HYDROCHLOROTHIAZIDE [Concomitant]
     Dosage: 25 MG, UNK
     Route: 065
  4. ALLOPURINOL [Concomitant]
     Dosage: 300 MG, QD
     Route: 065
  5. AMITRIPTYLINE HCL [Concomitant]
     Dosage: 300 MG, QD
     Route: 065
  6. DURAGESIC-100 [Concomitant]
     Route: 065
  7. INSULIN [Concomitant]
     Route: 065
  8. CLINDAMYCIN HCL [Concomitant]
     Route: 065

REACTIONS (12)
  - ANTIBIOTIC PROPHYLAXIS [None]
  - BIOPSY SITE UNSPECIFIED ABNORMAL [None]
  - DEATH [None]
  - ORAL SURGERY [None]
  - OSTECTOMY [None]
  - OSTEOMYELITIS ACUTE [None]
  - OSTEONECROSIS [None]
  - PERIODONTITIS [None]
  - PRIMARY SEQUESTRUM [None]
  - SUTURE INSERTION [None]
  - SUTURE RUPTURE [None]
  - TOOTH EXTRACTION [None]
